FAERS Safety Report 19501982 (Version 1)
Quarter: 2021Q3

REPORT INFORMATION
  Report Type: Spontaneous
  Country: US (occurrence: US)
  Receive Date: 20210707
  Receipt Date: 20210707
  Transmission Date: 20211014
  Serious: No
  Sender: FDA-Public Use
  Company Number: None

PATIENT

DRUGS (1)
  1. GRANISETRON HCL [Suspect]
     Active Substance: GRANISETRON HYDROCHLORIDE
     Route: 048

REACTIONS (2)
  - Product label confusion [None]
  - Product packaging confusion [None]
